FAERS Safety Report 10406152 (Version 1)
Quarter: 2014Q3

REPORT INFORMATION
  Report Type: Spontaneous
  Country: US (occurrence: None)
  Receive Date: 20140822
  Receipt Date: 20140822
  Transmission Date: 20150326
  Serious: No
  Sender: FDA-Public Use
  Company Number: None

PATIENT

DRUGS (2)
  1. BUPIVACAINE\EPINEPHRINE [Suspect]
     Active Substance: BUPIVACAINE\EPINEPHRINE
  2. NAROPIN [Suspect]
     Active Substance: ROPIVACAINE HYDROCHLORIDE

REACTIONS (1)
  - Product label confusion [None]
